FAERS Safety Report 9169081 (Version 1)
Quarter: 2013Q1

REPORT INFORMATION
  Report Type: Spontaneous
  Country: US (occurrence: US)
  Receive Date: 20130318
  Receipt Date: 20130318
  Transmission Date: 20140127
  Serious: Yes (Other)
  Sender: FDA-Public Use
  Company Number: US-GLAXOSMITHKLINE-A1015118A

PATIENT
  Age: 58 Year
  Sex: Female

DRUGS (5)
  1. ADVAIR [Suspect]
     Indication: ASTHMA
     Dosage: 1PUFF TWICE PER DAY
     Route: 055
     Dates: start: 2000
  2. FEMARA [Suspect]
     Indication: BREAST CANCER
     Route: 065
     Dates: start: 2009
  3. HYDROCHLOROTHIAZIDE [Concomitant]
  4. MULTIVITAMINS [Concomitant]
  5. ENALAPRIL [Concomitant]

REACTIONS (6)
  - Pseudomonas infection [Not Recovered/Not Resolved]
  - Breast cancer [Unknown]
  - Productive cough [Not Recovered/Not Resolved]
  - Dyspnoea [Not Recovered/Not Resolved]
  - Wheezing [Not Recovered/Not Resolved]
  - Bacterial infection [Not Recovered/Not Resolved]
